FAERS Safety Report 15189400 (Version 5)
Quarter: 2020Q4

REPORT INFORMATION
  Report Type: Report from Study
  Country: FR (occurrence: FR)
  Receive Date: 20180724
  Receipt Date: 20201013
  Transmission Date: 20210113
  Serious: Yes (Other)
  Sender: FDA-Public Use
  Company Number: FR-SAMSUNG BIOEPIS-SB-2018-09569

PATIENT
  Age: 12 Year
  Sex: Female

DRUGS (1)
  1. FLIXABI [Suspect]
     Active Substance: INFLIXIMAB
     Indication: CROHN^S DISEASE
     Dosage: 10 MG / KG OF FLIXABI: 400 MG IN 3 HOURS
     Route: 042
     Dates: start: 20180416

REACTIONS (11)
  - Crohn^s disease [Unknown]
  - Choking [Recovering/Resolving]
  - Drug intolerance [Recovered/Resolved]
  - Pallor [Recovered/Resolved]
  - Fatigue [Recovering/Resolving]
  - Suffocation feeling [Recovered/Resolved]
  - Hyperhidrosis [Recovering/Resolving]
  - Weight decreased [Unknown]
  - Dyspnoea [Recovering/Resolving]
  - Drug specific antibody present [Unknown]
  - Discomfort [Unknown]

NARRATIVE: CASE EVENT DATE: 20180712
